FAERS Safety Report 9293419 (Version 4)
Quarter: 2014Q2

REPORT INFORMATION
  Report Type: Spontaneous
  Country: US (occurrence: US)
  Receive Date: 20130516
  Receipt Date: 20140610
  Transmission Date: 20141212
  Serious: Yes (Hospitalization, Disabling, Other)
  Sender: FDA-Public Use
  Company Number: US-009507513-1305USA005522

PATIENT
  Sex: Female
  Weight: 88.44 kg

DRUGS (9)
  1. FOSAMAX [Suspect]
     Indication: OSTEOPOROSIS
     Dosage: 10 MG, UNK
     Route: 048
     Dates: start: 199912
  2. FOSAMAX [Suspect]
     Indication: OSTEOPENIA
     Dosage: 70 MG, QW
     Route: 048
     Dates: start: 20011020
  3. ALENDRONATE SODIUM [Suspect]
     Indication: OSTEOPOROSIS
     Dosage: 70 MG, QW
     Dates: start: 200807
  4. ALENDRONATE SODIUM [Suspect]
     Indication: OSTEOPENIA
  5. VITAMIN B COMPLEX [Concomitant]
     Dosage: QD
     Dates: start: 1998
  6. CALCIUM (UNSPECIFIED) (+) MAGNESIUM (UNSPECIFIED) (+) VITAMIN D (UNSPE [Concomitant]
     Dosage: 600+1500+600MG QD
     Dates: start: 1998
  7. VITAMINS (UNSPECIFIED) [Concomitant]
     Dosage: QD
     Dates: start: 1993
  8. SYNTHROID [Concomitant]
     Indication: POST PROCEDURAL HYPOTHYROIDISM
     Dosage: 0.2MG-150MCG QD
     Route: 048
     Dates: start: 1978
  9. CITALOPRAM [Concomitant]
     Indication: DEPRESSION
     Dosage: 40 MG, QD
     Route: 048
     Dates: start: 1997, end: 2013

REACTIONS (26)
  - Femur fracture [Recovering/Resolving]
  - Intramedullary rod insertion [Recovering/Resolving]
  - Medical device complication [Unknown]
  - Removal of internal fixation [Unknown]
  - Low turnover osteopathy [Not Recovered/Not Resolved]
  - Haemorrhagic anaemia [Unknown]
  - Contusion [Unknown]
  - Medical device discomfort [Unknown]
  - Rib fracture [Unknown]
  - Anaemia postoperative [Unknown]
  - Hypertension [Unknown]
  - Radiotherapy [Unknown]
  - Hypercholesterolaemia [Unknown]
  - Adverse event [Unknown]
  - Ear disorder [Unknown]
  - Sleep apnoea syndrome [Unknown]
  - Electrocardiogram abnormal [Unknown]
  - Haemoglobin decreased [Unknown]
  - Blood glucose abnormal [Unknown]
  - Type 2 diabetes mellitus [Unknown]
  - Calculus urinary [Unknown]
  - White blood cell count increased [Unknown]
  - Blood calcium decreased [Unknown]
  - Vomiting [Unknown]
  - Musculoskeletal pain [Unknown]
  - Drug ineffective [Unknown]
